FAERS Safety Report 6038429-0 (Version None)
Quarter: 2009Q1

REPORT INFORMATION
  Report Type: 
  Country: None (occurrence: None)
  Receive Date: 20090115
  Receipt Date: 20090108
  Transmission Date: 20090719
  Serious: Yes (Other)
  Sender: FDA-Public Use
  Company Number: FR-AVENTIS-200812113FR

PATIENT
  Age: 32 Year
  Sex: Female
  Weight: 75 kg

DRUGS (4)
  1. LOVENOX [Suspect]
     Route: 058
     Dates: start: 20080101
  2. LAMICTAL [Concomitant]
     Indication: EPILEPSY
     Route: 048
  3. SPECIAFOLDINE [Concomitant]
  4. LEVOTHYROX [Concomitant]
     Route: 048

REACTIONS (3)
  - ASSISTED DELIVERY [None]
  - FOETAL DISTRESS SYNDROME [None]
  - POSTPARTUM VENOUS THROMBOSIS [None]
